FAERS Safety Report 9307049 (Version 4)
Quarter: 2013Q4

REPORT INFORMATION
  Report Type: Spontaneous
  Country: US (occurrence: US)
  Receive Date: 20130523
  Receipt Date: 20131121
  Transmission Date: 20140711
  Serious: Yes (Hospitalization)
  Sender: FDA-Public Use
  Company Number: US-B.I. PHARMACEUTICALS,INC./RIDGEFIELD-2013-BI-14262BP

PATIENT
  Sex: Female
  Weight: 81.65 kg

DRUGS (11)
  1. PRADAXA [Suspect]
     Indication: ANTICOAGULANT THERAPY
     Dosage: 300 MG
     Route: 048
     Dates: start: 20101210, end: 20110612
  2. PRADAXA [Suspect]
     Indication: ATRIAL FIBRILLATION
  3. ASPIRIN [Suspect]
     Indication: ATRIAL FIBRILLATION
     Dosage: 81 MG
     Route: 048
  4. BAYERN [Concomitant]
  5. CRESTOR [Concomitant]
     Dosage: 10 MG
     Route: 048
     Dates: start: 2008
  6. DIGOXIN [Concomitant]
     Dosage: 0.25 MG
     Route: 048
     Dates: start: 2010
  7. KCL [Concomitant]
     Dosage: 10 MEQ
     Route: 048
     Dates: start: 2010
  8. LASIX [Concomitant]
     Dosage: 40 MG
     Route: 048
     Dates: start: 2010
  9. METOPROLOL XL [Concomitant]
     Dosage: 100 MG
     Dates: start: 2010
  10. PRILOSEC [Concomitant]
     Dosage: 20 MG
     Route: 048
     Dates: start: 2010
  11. RAMIPRIL [Concomitant]
     Dosage: 25 MG
     Route: 048
     Dates: start: 2010

REACTIONS (1)
  - Extradural haematoma [Unknown]
